FAERS Safety Report 24961461 (Version 1)
Quarter: 2025Q1

REPORT INFORMATION
  Report Type: Spontaneous
  Country: FR (occurrence: FR)
  Receive Date: 20250212
  Receipt Date: 20250212
  Transmission Date: 20250409
  Serious: Yes (Other)
  Sender: MYLAN
  Company Number: None

PATIENT
  Age: 80 Year
  Sex: Female

DRUGS (1)
  1. AMIODARONE [Suspect]
     Active Substance: AMIODARONE
     Indication: Atrial fibrillation
     Dosage: 1000 MILLIGRAM,QW,(200 MG 5 DAY/7)
     Route: 048
     Dates: end: 20240823

REACTIONS (2)
  - Hyperthyroidism [Recovering/Resolving]
  - Corneal deposits [Not Recovered/Not Resolved]

NARRATIVE: CASE EVENT DATE: 20240701
